FAERS Safety Report 4970879-3 (Version None)
Quarter: 2006Q2

REPORT INFORMATION
  Report Type: 
  Country: None (occurrence: None)
  Receive Date: 20060406
  Receipt Date: 20060323
  Transmission Date: 20061013
  Serious: Yes (Hospitalization)
  Sender: FDA-Public Use
  Company Number: 200611167GDS

PATIENT
  Age: 69 Year
  Sex: Male

DRUGS (10)
  1. LEVITRA                       (VARDENAFIL HYDROCHLORIDE) [Suspect]
     Indication: PSYCHOSOMATIC DISEASE
     Dosage: PRN,ORAL
     Route: 048
     Dates: start: 20060123
  2. LEVITRA                       (VARDENAFIL HYDROCHLORIDE) [Suspect]
     Indication: UROGENITAL DISORDER
     Dosage: PRN,ORAL
     Route: 048
     Dates: start: 20060123
  3. TAMBOCOR [Suspect]
     Indication: ATRIAL FIBRILLATION
     Dosage: 200 MG, ORAL
     Route: 048
     Dates: start: 20051219, end: 20060208
  4. LIPITOR [Concomitant]
  5. DIOVAN COMP [Concomitant]
  6. ZANIDIP [Concomitant]
  7. LEVAXIN [Concomitant]
  8. XANOR [Concomitant]
  9. ATENOLOL [Concomitant]
  10. TROMBYL [Concomitant]

REACTIONS (2)
  - PALPITATIONS [None]
  - VENTRICULAR TACHYCARDIA [None]
